FAERS Safety Report 10607772 (Version 3)
Quarter: 2014Q4

REPORT INFORMATION
  Report Type: Report from Study
  Country: DE (occurrence: DE)
  Receive Date: 20141125
  Receipt Date: 20141227
  Transmission Date: 20150529
  Serious: Yes (Hospitalization, Other)
  Sender: FDA-Public Use
  Company Number: DE-ABBVIE-14K-062-1304395-00

PATIENT
  Age: 77 Year
  Sex: Male
  Weight: 78 kg

DRUGS (3)
  1. METHOTREXATE [Suspect]
     Active Substance: METHOTREXATE
     Indication: PRODUCT USED FOR UNKNOWN INDICATION
     Route: 058
     Dates: start: 201207, end: 201212
  2. HUMIRA [Suspect]
     Active Substance: ADALIMUMAB
     Indication: RHEUMATIC DISORDER
     Route: 058
     Dates: start: 20120731, end: 201212
  3. HUMIRA [Suspect]
     Active Substance: ADALIMUMAB
     Indication: RHEUMATOID ARTHRITIS
     Route: 058
     Dates: end: 201408

REACTIONS (4)
  - Skin cancer [Recovered/Resolved]
  - Ankle fracture [Unknown]
  - Wound infection [Unknown]
  - Lumbar spinal stenosis [Recovering/Resolving]

NARRATIVE: CASE EVENT DATE: 2012
